FAERS Safety Report 10273675 (Version 1)
Quarter: 2014Q3

REPORT INFORMATION
  Report Type: Spontaneous
  Country: US (occurrence: US)
  Receive Date: 20140702
  Receipt Date: 20140702
  Transmission Date: 20150326
  Serious: Yes (Hospitalization)
  Sender: FDA-Public Use
  Company Number: US-GLAXOSMITHKLINE-A1075924A

PATIENT
  Age: 70 Year
  Sex: Female
  Weight: 72.7 kg

DRUGS (1)
  1. ARZERRA [Suspect]
     Active Substance: OFATUMUMAB
     Indication: WALDENSTROM^S MACROGLOBULINAEMIA
     Dosage: 300MG SEE DOSAGE TEXT
     Route: 042
     Dates: start: 20140604, end: 20140604

REACTIONS (3)
  - Swelling face [Recovered/Resolved]
  - Eye swelling [Recovered/Resolved]
  - Conjunctival oedema [Recovered/Resolved]

NARRATIVE: CASE EVENT DATE: 20140604
